FAERS Safety Report 24531761 (Version 2)
Quarter: 2024Q4

REPORT INFORMATION
  Report Type: Report from Study
  Country: JP (occurrence: JP)
  Receive Date: 20241022
  Receipt Date: 20241024
  Transmission Date: 20250115
  Serious: Yes (Death, Other)
  Sender: ROCHE
  Company Number: JP-ROCHE-10000107950

PATIENT

DRUGS (1)
  1. BEVACIZUMAB [Suspect]
     Active Substance: BEVACIZUMAB
     Indication: Malignant glioma
     Route: 065

REACTIONS (4)
  - Myocardial infarction [Fatal]
  - Meningitis [Fatal]
  - Proteinuria [Unknown]
  - Alopecia [Unknown]
